FAERS Safety Report 4893288-4 (Version None)
Quarter: 2006Q1

REPORT INFORMATION
  Report Type: 
  Country: None (occurrence: None)
  Receive Date: 20060124
  Receipt Date: 20060120
  Transmission Date: 20060701
  Serious: Yes (Hospitalization)
  Sender: FDA-Public Use
  Company Number: TCI2006A00206

PATIENT
  Age: 63 Year
  Sex: Male

DRUGS (4)
  1. LANSOPRAZOLE [Suspect]
     Indication: GASTRIC ULCER
     Dosage: 30 MG (30 MG, 1 D)
     Route: 048
     Dates: start: 20051129, end: 20051218
  2. RABEPRAZOLE SODIUM [Suspect]
     Indication: GASTRIC ULCER
     Route: 048
     Dates: start: 20051219, end: 20051222
  3. MAALOX DRY SUSPENSION GRANULE (ALUDROX /00082501/) GRANULATE) [Concomitant]
  4. ULCERLMIN (SUCRALFATE) (PREPARATION FOR ORAL USE (NOS)) [Concomitant]

REACTIONS (5)
  - BONE MARROW FAILURE [None]
  - MALAISE [None]
  - PLATELET COUNT DECREASED [None]
  - RENAL FAILURE ACUTE [None]
  - TUBULOINTERSTITIAL NEPHRITIS [None]
